FAERS Safety Report 11572408 (Version 1)
Quarter: 2015Q3

REPORT INFORMATION
  Report Type: Spontaneous
  Country: UA (occurrence: UA)
  Receive Date: 20150929
  Receipt Date: 20150929
  Transmission Date: 20151125
  Serious: Yes (Death)
  Sender: FDA-Public Use
  Company Number: UA-ASTRAZENECA-2015SE92698

PATIENT
  Sex: Male
  Weight: 100 kg

DRUGS (2)
  1. FORXIGA [Suspect]
     Active Substance: DAPAGLIFLOZIN
     Indication: TYPE 2 DIABETES MELLITUS
     Route: 048
  2. AMARYL M [Concomitant]
     Active Substance: GLIMEPIRIDE\METFORMIN

REACTIONS (1)
  - Pulmonary embolism [Fatal]
